FAERS Safety Report 8808137 (Version 2)
Quarter: 2013Q1

REPORT INFORMATION
  Report Type: Spontaneous
  Country: US (occurrence: US)
  Receive Date: 20120925
  Receipt Date: 20130212
  Transmission Date: 20140127
  Serious: Yes (Death)
  Sender: FDA-Public Use
  Company Number: US-ROCHE-1129968

PATIENT
  Sex: Female

DRUGS (2)
  1. HERCEPTIN [Suspect]
     Indication: BREAST CANCER
     Dosage: LOADING DOSE
     Route: 065
     Dates: start: 19990112
  2. HERCEPTIN [Suspect]
     Indication: METASTASES TO BONE
     Dosage: MAINTENANCE DOSE
     Route: 065

REACTIONS (1)
  - Death [Fatal]
